FAERS Safety Report 5866210-1 (Version None)
Quarter: 2008Q3

REPORT INFORMATION
  Report Type: 
  Country: None (occurrence: None)
  Receive Date: 20080829
  Receipt Date: 20080819
  Transmission Date: 20090109
  Serious: Yes (Other)
  Sender: FDA-Public Use
  Company Number: GB-PFIZER INC-2008069818

PATIENT
  Age: 51 Year
  Sex: Female
  Weight: 75 kg

DRUGS (1)
  1. CHANTIX [Suspect]
     Indication: SMOKING CESSATION THERAPY
     Route: 048
     Dates: start: 20080625, end: 20080716

REACTIONS (6)
  - DECREASED APPETITE [None]
  - DIABETIC KETOACIDOSIS [None]
  - DYSGEUSIA [None]
  - GINGIVAL SWELLING [None]
  - TONGUE COATED [None]
  - VISUAL ACUITY REDUCED [None]
